FAERS Safety Report 9178712 (Version 2)
Quarter: 2013Q2

REPORT INFORMATION
  Report Type: Spontaneous
  Country: US (occurrence: US)
  Receive Date: 20130321
  Receipt Date: 20130429
  Transmission Date: 20140414
  Serious: Yes (Death, Hospitalization)
  Sender: FDA-Public Use
  Company Number: US-ALEXION-A201300452

PATIENT
  Age: 80 Year
  Sex: Female
  Weight: 67 kg

DRUGS (8)
  1. SOLIRIS 300MG [Suspect]
     Indication: HAEMOLYTIC URAEMIC SYNDROME
     Dosage: 900 MG, QW
     Route: 042
     Dates: start: 20130227
  2. LIPITOR [Concomitant]
     Dosage: 10 MG, QD AT BEDTIME
     Route: 048
  3. LEVOTHYROXINE [Concomitant]
     Dosage: 125 MEQ, QD
     Route: 048
  4. METOPROLOL [Concomitant]
     Dosage: 50 MG, BID
  5. PROTONIX [Concomitant]
     Dosage: 40 MG, QD
  6. CLONIDINE [Concomitant]
     Dosage: UNK, PRN
  7. PREDNISONE [Concomitant]
     Indication: HYPONATRAEMIA
     Dosage: 40 MG, QD
  8. PREDNISONE [Concomitant]
     Dosage: 5 MG, QD
     Route: 048

REACTIONS (18)
  - Pulmonary haemorrhage [Fatal]
  - Respiratory failure [Fatal]
  - Pericardial effusion [Not Recovered/Not Resolved]
  - Cardiomegaly [Unknown]
  - Renal failure acute [Not Recovered/Not Resolved]
  - Hypoxia [Unknown]
  - Pleural effusion [Not Recovered/Not Resolved]
  - Generalised oedema [Not Recovered/Not Resolved]
  - Pancytopenia [Unknown]
  - Platelet count increased [Not Recovered/Not Resolved]
  - Hyponatraemia [Unknown]
  - Limb injury [Unknown]
  - Dyspnoea [Not Recovered/Not Resolved]
  - Weight increased [Unknown]
  - Blood lactate dehydrogenase increased [Not Recovered/Not Resolved]
  - Anaemia [Not Recovered/Not Resolved]
  - Oedema [Not Recovered/Not Resolved]
  - Asthenia [Unknown]
